FAERS Safety Report 6332736-X (Version None)
Quarter: 2009Q3

REPORT INFORMATION
  Report Type: 
  Country: None (occurrence: None)
  Receive Date: 20090828
  Receipt Date: 20090821
  Transmission Date: 20100115
  Serious: Yes (Hospitalization)
  Sender: FDA-Public Use
  Company Number: US-ABBOTT-07P-163-0365343-00

PATIENT
  Sex: Female
  Weight: 68.1 kg

DRUGS (2)
  1. HUMIRA [Suspect]
     Indication: RHEUMATOID ARTHRITIS
     Dosage: SYRINGE
     Route: 058
     Dates: start: 20060701, end: 20061001
  2. HUMIRA [Suspect]
     Dosage: PEN
     Route: 058
     Dates: start: 20070417

REACTIONS (2)
  - INCORRECT DOSE ADMINISTERED [None]
  - INTERVERTEBRAL DISC DISORDER [None]
